FAERS Safety Report 5708817-8 (Version None)
Quarter: 2008Q2

REPORT INFORMATION
  Report Type: 
  Country: None (occurrence: None)
  Receive Date: 20080416
  Receipt Date: 20080401
  Transmission Date: 20081010
  Serious: Yes (Hospitalization)
  Sender: FDA-Public Use
  Company Number: 2008BI008095

PATIENT
  Age: 63 Year
  Sex: Male
  Weight: 77.1115 kg

DRUGS (1)
  1. TYSABRI [Suspect]
     Indication: MULTIPLE SCLEROSIS
     Dosage: 300  MG;QM;IV
     Route: 042
     Dates: start: 20071025

REACTIONS (9)
  - ABASIA [None]
  - DRUG INEFFECTIVE [None]
  - DYSARTHRIA [None]
  - DYSSTASIA [None]
  - FALL [None]
  - MEMORY IMPAIRMENT [None]
  - PROGRESSIVE MULTIFOCAL LEUKOENCEPHALOPATHY [None]
  - PYREXIA [None]
  - UNEVALUABLE EVENT [None]
